FAERS Safety Report 20489426 (Version 1)
Quarter: 2022Q1

REPORT INFORMATION
  Report Type: Spontaneous
  Country: FR (occurrence: FR)
  Receive Date: 20220218
  Receipt Date: 20220218
  Transmission Date: 20220424
  Serious: Yes (Congenital Anomaly)
  Sender: FDA-Public Use
  Company Number: FR-ABBVIE-22K-056-4283376-00

PATIENT
  Sex: Male

DRUGS (1)
  1. VALPROATE SODIUM [Suspect]
     Active Substance: VALPROATE SODIUM
     Indication: Maternal exposure timing unspecified
     Route: 064

REACTIONS (44)
  - Heart disease congenital [Unknown]
  - Hypotonia [Recovered/Resolved]
  - Hypertonia [Recovered/Resolved]
  - Hypermobility syndrome [Unknown]
  - Dysmorphism [Unknown]
  - Strabismus [Unknown]
  - Pyloric stenosis [Unknown]
  - Haemangioma [Unknown]
  - Ear malformation [Unknown]
  - Congenital nipple anomaly [Unknown]
  - Psychomotor retardation [Unknown]
  - Fine motor delay [Unknown]
  - Language disorder [Unknown]
  - Behaviour disorder [Unknown]
  - Mental impairment [Unknown]
  - Dysmorphism [Unknown]
  - Ear malformation [Unknown]
  - Social problem [Unknown]
  - Psychomotor skills impaired [Unknown]
  - Cyanosis [Unknown]
  - Regurgitation [Unknown]
  - Pyrexia [Unknown]
  - Gastroenteritis [Unknown]
  - Dehydration [Unknown]
  - Dyskinesia [Unknown]
  - Otitis media acute [Unknown]
  - Communication disorder [Unknown]
  - Behaviour disorder [Unknown]
  - Tuberous sclerosis complex [Unknown]
  - Nose deformity [Unknown]
  - Eye disorder [Unknown]
  - Pharyngeal disorder [Unknown]
  - Viral infection [Unknown]
  - Drug withdrawal syndrome neonatal [Recovered/Resolved]
  - Autism spectrum disorder [Unknown]
  - Cognitive disorder [Unknown]
  - Bradycardia [Unknown]
  - Disturbance in attention [Unknown]
  - Learning disorder [Unknown]
  - Pyrexia [Unknown]
  - Vomiting [Unknown]
  - Nausea [Unknown]
  - Enuresis [Unknown]
  - Foetal exposure during pregnancy [Unknown]

NARRATIVE: CASE EVENT DATE: 20081019
